FAERS Safety Report 12775233 (Version 1)
Quarter: 2016Q3

REPORT INFORMATION
  Report Type: Spontaneous
  Country: US (occurrence: US)
  Receive Date: 20160922
  Receipt Date: 20160922
  Transmission Date: 20161109
  Serious: Yes (Life-Threatening, Hospitalization, Disabling, Other)
  Sender: FDA-Public Use
  Company Number: None

PATIENT
  Age: 32 Year
  Sex: Female
  Weight: 74.25 kg

DRUGS (6)
  1. INCENTIVE SPIROMETER [Concomitant]
  2. MELATONIN [Concomitant]
     Active Substance: MELATONIN
  3. XANAX [Concomitant]
     Active Substance: ALPRAZOLAM
  4. SPIRONOLACTONE. [Concomitant]
     Active Substance: SPIRONOLACTONE
  5. BOTOX COSMETIC [Suspect]
     Active Substance: ONABOTULINUMTOXINA
     Indication: SKIN WRINKLING
     Dosage: OTHER STRENGTH:;OTHER DOSE:UNITS;OTHER FREQUENCY:X1;OTHER ROUTE:SHOULD BE INJECTED INTERMUSCULARLY
  6. PRILOSEC [Concomitant]
     Active Substance: OMEPRAZOLE MAGNESIUM

REACTIONS (41)
  - Chest discomfort [None]
  - Tremor [None]
  - Heart rate increased [None]
  - Blood pressure fluctuation [None]
  - Photophobia [None]
  - Back pain [None]
  - Nausea [None]
  - Pulmonary oedema [None]
  - Paraesthesia [None]
  - Hypoaesthesia [None]
  - Vision blurred [None]
  - Bradycardia [None]
  - Dysarthria [None]
  - Muscle twitching [None]
  - Feeling abnormal [None]
  - Heart rate decreased [None]
  - Tinnitus [None]
  - Diplopia [None]
  - Micturition urgency [None]
  - Hypersensitivity [None]
  - Asthenia [None]
  - Balance disorder [None]
  - Botulism [None]
  - Ventricular extrasystoles [None]
  - Neuralgia [None]
  - Gait disturbance [None]
  - Tachycardia [None]
  - Neuropathy peripheral [None]
  - Chest pain [None]
  - Supraventricular extrasystoles [None]
  - Abdominal pain upper [None]
  - Autonomic nervous system imbalance [None]
  - Mitral valve incompetence [None]
  - Pallor [None]
  - Dizziness [None]
  - Dysphagia [None]
  - Urticaria [None]
  - Choking [None]
  - Oxygen saturation decreased [None]
  - Respiratory failure [None]
  - Presyncope [None]

NARRATIVE: CASE EVENT DATE: 20150924
